FAERS Safety Report 16979882 (Version 2)
Quarter: 2019Q4

REPORT INFORMATION
  Report Type: Spontaneous
  Country: CN (occurrence: CN)
  Receive Date: 20191031
  Receipt Date: 20191114
  Transmission Date: 20200122
  Serious: Yes (Other)
  Sender: FDA-Public Use
  Company Number: CN-ABBVIE-19K-035-2816240-00

PATIENT
  Age: 67 Year
  Sex: Female

DRUGS (1)
  1. VENCLEXTA [Suspect]
     Active Substance: VENETOCLAX
     Indication: PRODUCT USED FOR UNKNOWN INDICATION
     Route: 048

REACTIONS (8)
  - Mouth swelling [Unknown]
  - Red blood cell abnormality [Unknown]
  - Eosinophil count abnormal [Unknown]
  - Erythroblast count abnormal [Unknown]
  - Cerebral infarction [Unknown]
  - Mouth haemorrhage [Unknown]
  - Myocardial infarction [Unknown]
  - Platelet disorder [Unknown]

NARRATIVE: CASE EVENT DATE: 2019
